FAERS Safety Report 25268976 (Version 1)
Quarter: 2025Q2

REPORT INFORMATION
  Report Type: Spontaneous
  Country: IT (occurrence: IT)
  Receive Date: 20250505
  Receipt Date: 20250505
  Transmission Date: 20250717
  Serious: Yes (Death, Other)
  Sender: AMGEN
  Company Number: None

PATIENT
  Age: 78 Year
  Sex: Male
  Weight: 80 kg

DRUGS (1)
  1. SOTORASIB [Suspect]
     Active Substance: SOTORASIB
     Indication: Non-small cell lung cancer
     Dosage: 8 DOSAGE FORM, QD (8 TABLETS PER DAY)
     Route: 048
     Dates: start: 20241213, end: 20250203

REACTIONS (6)
  - Drug-induced liver injury [Fatal]
  - Thrombocytopenia [Fatal]
  - Cholestasis [Fatal]
  - Ascites [Unknown]
  - Peripheral coldness [Unknown]
  - Abdominal pain [Unknown]

NARRATIVE: CASE EVENT DATE: 20250204
